FAERS Safety Report 21181238 (Version 3)
Quarter: 2025Q1

REPORT INFORMATION
  Report Type: Report from Study
  Country: FR (occurrence: FR)
  Receive Date: 20220806
  Receipt Date: 20250124
  Transmission Date: 20250409
  Serious: Yes (Hospitalization)
  Sender: TAKEDA
  Company Number: FR-TAKEDA-2022TUS051598

PATIENT
  Age: 8 Year
  Sex: Male

DRUGS (11)
  1. TEDUGLUTIDE [Suspect]
     Active Substance: TEDUGLUTIDE
     Indication: Short-bowel syndrome
     Dosage: 1.26 MILLIGRAM, QD
     Dates: start: 20220120, end: 20220214
  2. TEDUGLUTIDE [Suspect]
     Active Substance: TEDUGLUTIDE
     Dosage: 0.645 MILLIGRAM, QD
     Dates: start: 20220223, end: 20220227
  3. TEDUGLUTIDE [Suspect]
     Active Substance: TEDUGLUTIDE
     Dosage: 1.29 MILLIGRAM, QD
     Dates: start: 20220228, end: 20220808
  4. TEDUGLUTIDE [Suspect]
     Active Substance: TEDUGLUTIDE
     Dosage: 2.02 MILLIGRAM, QD
     Dates: start: 20220809
  5. URSODIOL [Concomitant]
     Active Substance: URSODIOL
     Indication: Infected bite
     Dosage: 500 MILLIGRAM, QD
     Dates: start: 202201
  6. AMIKACIN [Concomitant]
     Active Substance: AMIKACIN
     Indication: Staphylococcal infection
     Dosage: 20 MILLIGRAM/KILOGRAM, QD
     Dates: start: 20220214, end: 20220221
  7. TARGOCID [Concomitant]
     Active Substance: TEICOPLANIN
     Indication: Staphylococcal infection
     Dosage: 10 MILLIGRAM/KILOGRAM, QD
     Dates: start: 20220214, end: 20220221
  8. ACETAMINOPHEN [Concomitant]
     Active Substance: ACETAMINOPHEN
     Indication: Pyrexia
     Dosage: 1 INTERNATIONAL UNIT/KILOGRAM, QID
     Dates: start: 20220213, end: 20220214
  9. NUBAIN [Concomitant]
     Active Substance: NALBUPHINE HYDROCHLORIDE
     Indication: Pancreatitis acute
     Dates: start: 20210323, end: 20210329
  10. FAMOTIDINE [Concomitant]
     Active Substance: FAMOTIDINE
     Indication: Pancreatitis acute
     Dosage: 40 MILLIGRAM, QD
     Dates: start: 20210212, end: 20210218
  11. FAMOTIDINE [Concomitant]
     Active Substance: FAMOTIDINE
     Dosage: 40 MILLIGRAM, QD
     Dates: start: 20201227, end: 20210105

REACTIONS (1)
  - Complication associated with device [Recovered/Resolved]

NARRATIVE: CASE EVENT DATE: 20220314
